FAERS Safety Report 12037367 (Version 1)
Quarter: 2016Q1

REPORT INFORMATION
  Report Type: Spontaneous
  Country: US (occurrence: None)
  Receive Date: 20160205
  Receipt Date: 20160205
  Transmission Date: 20160526
  Serious: Yes (Disabling)
  Sender: FDA-Public Use
  Company Number: None

PATIENT
  Age: 60 Year
  Sex: Male
  Weight: 93.44 kg

DRUGS (24)
  1. AMLODIPINE BESYLATE-BENAZEP [Concomitant]
  2. PANTOPRAZOLE SODIUM. [Concomitant]
     Active Substance: PANTOPRAZOLE SODIUM
  3. ROPINIROLE HCL [Concomitant]
     Active Substance: ROPINIROLE HYDROCHLORIDE
  4. CLONAZEPAM. [Concomitant]
     Active Substance: CLONAZEPAM
  5. LANTUS SOLOSTAR [Concomitant]
     Active Substance: INSULIN GLARGINE
  6. MYRBETRIQ [Suspect]
     Active Substance: MIRABEGRON
  7. D M E [Concomitant]
  8. ONE TOUCH VERIO IQ GLUCOMETER [Concomitant]
  9. CPAP SUPPLIES [Concomitant]
  10. MELATONIN [Concomitant]
     Active Substance: MELATONIN
  11. TANZEUM [Suspect]
     Active Substance: ALBIGLUTIDE
     Indication: TYPE 2 DIABETES MELLITUS
     Dosage: ONCE A WEEK INTO THE MUSCLE
     Route: 030
  12. GLIPIZIDE. [Concomitant]
     Active Substance: GLIPIZIDE
  13. OXYBUTYNIN ER [Concomitant]
     Active Substance: OXYBUTYNIN
  14. METFORMIN [Concomitant]
     Active Substance: METFORMIN HYDROCHLORIDE
  15. METOPROLOL SUCCINATE ER [Concomitant]
     Active Substance: METOPROLOL SUCCINATE
  16. SERTRALINE HCL [Concomitant]
     Active Substance: SERTRALINE HYDROCHLORIDE
  17. OMEGA-3 ACID ETHYL ESTERS [Concomitant]
     Active Substance: OMEGA-3-ACID ETHYL ESTERS
  18. IBUPROFEN. [Concomitant]
     Active Substance: IBUPROFEN
  19. SIMVASTATIN. [Concomitant]
     Active Substance: SIMVASTATIN
  20. RAPAFLO [Concomitant]
     Active Substance: SILODOSIN
  21. MIRTAZAPINE. [Concomitant]
     Active Substance: MIRTAZAPINE
  22. VITAMIN D3 [Concomitant]
     Active Substance: CHOLECALCIFEROL
  23. B-DONNA [Concomitant]
     Active Substance: ATROPINE SULFATE\HYOSCYAMINE SULFATE\PHENOBARBITAL\SCOPOLAMINE HYDROBROMIDE
  24. ONE TOUCH NEEDLES [Concomitant]

REACTIONS (7)
  - Abdominal discomfort [None]
  - Vomiting [None]
  - Abdominal distension [None]
  - Influenza like illness [None]
  - Nausea [None]
  - Chills [None]
  - Diarrhoea [None]

NARRATIVE: CASE EVENT DATE: 20150605
